FAERS Safety Report 9779040 (Version 2)
Quarter: 2013Q4

REPORT INFORMATION
  Report Type: Spontaneous
  Country: US (occurrence: US)
  Receive Date: 20131223
  Receipt Date: 20131223
  Transmission Date: 20140711
  Serious: Yes (Other)
  Sender: FDA-Public Use
  Company Number: US-ENDO PHARMACEUTICALS INC.-OPCR20130224

PATIENT
  Age: 68 Year
  Sex: Female

DRUGS (1)
  1. OPANA ER 10MG [Suspect]
     Indication: PRODUCT USED FOR UNKNOWN INDICATION
     Route: 048
     Dates: start: 20130429

REACTIONS (2)
  - Convulsion [Recovered/Resolved]
  - Accidental overdose [Recovered/Resolved]
